FAERS Safety Report 4866753-3 (Version None)
Quarter: 2005Q4

REPORT INFORMATION
  Report Type: 
  Country: None (occurrence: None)
  Receive Date: 20051221
  Receipt Date: 20051209
  Transmission Date: 20060501
  Serious: Yes (Death)
  Sender: FDA-Public Use
  Company Number: 220003L05GBR

PATIENT
  Age: 45 Year
  Sex: Female

DRUGS (1)
  1. SOMATROPIN (SOMATROPIN) [Suspect]

REACTIONS (4)
  - ACUTE PULMONARY OEDEMA [None]
  - FIBROSIS [None]
  - NEOPLASM RECURRENCE [None]
  - TACHYARRHYTHMIA [None]
